FAERS Safety Report 7107501-6 (Version None)
Quarter: 2010Q4

REPORT INFORMATION
  Report Type: 
  Country: None (occurrence: None)
  Receive Date: 20101117
  Receipt Date: 20101108
  Transmission Date: 20110411
  Serious: Yes (Hospitalization)
  Sender: FDA-Public Use
  Company Number: US-TEVA-254803USA

PATIENT
  Age: 46 Year
  Sex: Male

DRUGS (3)
  1. PROPAFENONE HCL [Suspect]
     Dates: start: 20090101
  2. PROPAFENONE HCL [Interacting]
     Dates: start: 20090101
  3. ETHANOL [Interacting]
     Dosage: TWO MIXED DRINKS, EIGHT BEERS

REACTIONS (4)
  - DRUG INTERACTION [None]
  - ELECTROCARDIOGRAM QRS COMPLEX PROLONGED [None]
  - LEFT VENTRICULAR DYSFUNCTION [None]
  - SYNCOPE [None]
